FAERS Safety Report 15888699 (Version 3)
Quarter: 2019Q3

REPORT INFORMATION
  Report Type: Report from Study
  Country: US (occurrence: US)
  Receive Date: 20190130
  Receipt Date: 20190916
  Transmission Date: 20191004
  Serious: No
  Sender: FDA-Public Use
  Company Number: PHEH2019US004169

PATIENT
  Age: 89 Year
  Sex: Male

DRUGS (1)
  1. COSENTYX [Suspect]
     Active Substance: SECUKINUMAB
     Indication: PSORIASIS
     Dosage: 300 MG, QMO (Q4W)
     Route: 058

REACTIONS (7)
  - Upper respiratory tract infection [Not Recovered/Not Resolved]
  - Hyperhidrosis [Unknown]
  - Fall [Unknown]
  - Malaise [Unknown]
  - Constipation [Unknown]
  - Dry mouth [Unknown]
  - Cough [Unknown]
